FAERS Safety Report 8506391-4 (Version None)
Quarter: 2012Q3

REPORT INFORMATION
  Report Type: 
  Country: None (occurrence: None)
  Receive Date: 20120706
  Receipt Date: 20120706
  Transmission Date: 20120928
  Serious: No
  Sender: FDA-Public Use
  Company Number: None

PATIENT
  Sex: Female

DRUGS (1)
  1. AVONEX [Suspect]
     Dosage: 30 MCG (0.5 ML) IM ONCE A WEEK AS DIRECTED BY YOUR PHYSICIAN
     Route: 030

REACTIONS (3)
  - PHOTOPSIA [None]
  - EYE PAIN [None]
  - CONJUNCTIVITIS [None]
